FAERS Safety Report 24451105 (Version 2)
Quarter: 2024Q4

REPORT INFORMATION
  Report Type: Spontaneous
  Country: JP (occurrence: JP)
  Receive Date: 20241017
  Receipt Date: 20241029
  Transmission Date: 20250115
  Serious: Yes (Other)
  Sender: JOHNSON AND JOHNSON
  Company Number: JP-BAYER-2024A147137

PATIENT
  Age: 9 Decade
  Sex: Male

DRUGS (6)
  1. XARELTO [Suspect]
     Active Substance: RIVAROXABAN
     Indication: Product used for unknown indication
     Route: 048
  2. BEPRIDIL [Concomitant]
     Active Substance: BEPRIDIL
     Dosage: UNK
  3. ENTRESTO [Concomitant]
     Active Substance: SACUBITRIL\VALSARTAN
     Dosage: UNK
  4. EPLERENONE [Concomitant]
     Active Substance: EPLERENONE
     Dosage: UNK
  5. ADALAT CC [Concomitant]
     Active Substance: NIFEDIPINE
     Dosage: UNK
  6. VONOPRAZAN FUMARATE [Concomitant]
     Active Substance: VONOPRAZAN FUMARATE
     Dosage: UNK

REACTIONS (2)
  - Atypical mycobacterial pneumonia [Unknown]
  - Haematemesis [Unknown]

NARRATIVE: CASE EVENT DATE: 20240418
